FAERS Safety Report 9208290 (Version 3)
Quarter: 2013Q2

REPORT INFORMATION
  Report Type: Spontaneous
  Country: US (occurrence: US)
  Receive Date: 20130403
  Receipt Date: 20130505
  Transmission Date: 20140414
  Serious: Yes (Death, Hospitalization, Other)
  Sender: FDA-Public Use
  Company Number: US-B.I. PHARMACEUTICALS,INC./RIDGEFIELD-2013-BI-08796BP

PATIENT
  Age: 62 Year
  Sex: Male
  Weight: 137 kg

DRUGS (2)
  1. SPIRIVA [Suspect]
     Indication: CHRONIC OBSTRUCTIVE PULMONARY DISEASE
     Dosage: 18 MCG
     Route: 055
     Dates: start: 20130128, end: 20130328
  2. MULZIPLE [Concomitant]

REACTIONS (6)
  - Lymphoma [Fatal]
  - Unresponsive to stimuli [Recovered/Resolved]
  - Colon cancer [Unknown]
  - Lung neoplasm malignant [Unknown]
  - Sepsis [Unknown]
  - Pneumonia [Unknown]
